FAERS Safety Report 8622070-7 (Version None)
Quarter: 2012Q3

REPORT INFORMATION
  Report Type: 
  Country: None (occurrence: None)
  Receive Date: 20120823
  Receipt Date: 20120823
  Transmission Date: 20120928
  Serious: No
  Sender: FDA-Public Use
  Company Number: None

PATIENT
  Age: 58 Year
  Sex: Female
  Weight: 149 kg

DRUGS (2)
  1. PIPERACILLIN AND TAZOBACTAM [Suspect]
     Indication: CELLULITIS
     Dosage: 4.5GM Q6H IV
     Route: 042
     Dates: start: 20120801, end: 20120802
  2. PIPERACILLIN AND TAZOBACTAM [Suspect]
     Indication: CELLULITIS
     Dosage: 4.5GM Q6H IV
     Route: 042

REACTIONS (2)
  - PRODUCT QUALITY ISSUE [None]
  - PRODUCT CONTAMINATION [None]
